FAERS Safety Report 7124589-7 (Version None)
Quarter: 2010Q4

REPORT INFORMATION
  Report Type: 
  Country: None (occurrence: None)
  Receive Date: 20101117
  Receipt Date: 20101117
  Transmission Date: 20110411
  Serious: No
  Sender: FDA-Public Use
  Company Number: None

PATIENT
  Age: 47 Year
  Sex: Female
  Weight: 63.5036 kg

DRUGS (1)
  1. OXY-POWDER 2746 MG OZONATED MAGNESIUM OXIDES GLOBAL HEALING CENTER [Suspect]
     Indication: CONSTIPATION
     Dosage: 4 CAPSULES ONCE A DAY PO
     Route: 048
     Dates: start: 20101015, end: 20101108

REACTIONS (1)
  - PRODUCT COUNTERFEIT [None]
